FAERS Safety Report 13188116 (Version 1)
Quarter: 2017Q1

REPORT INFORMATION
  Report Type: Spontaneous
  Country: IR (occurrence: IR)
  Receive Date: 20170206
  Receipt Date: 20170206
  Transmission Date: 20170428
  Serious: Yes (Death)
  Sender: FDA-Public Use
  Company Number: IR-SA-2017SA017723

PATIENT
  Age: 5 Month
  Sex: Male
  Weight: 5 kg

DRUGS (1)
  1. MYOZYME [Suspect]
     Active Substance: ALGLUCOSIDASE ALFA
     Indication: GLYCOGEN STORAGE DISEASE TYPE II
     Route: 042
     Dates: end: 201701

REACTIONS (2)
  - Cardiomyopathy [Fatal]
  - Respiratory failure [Fatal]

NARRATIVE: CASE EVENT DATE: 201701
